FAERS Safety Report 10300348 (Version 3)
Quarter: 2014Q3

REPORT INFORMATION
  Report Type: Spontaneous
  Country: US (occurrence: US)
  Receive Date: 20140712
  Receipt Date: 20140828
  Transmission Date: 20150326
  Serious: Yes (Death, Hospitalization, Disabling, Other)
  Sender: FDA-Public Use
  Company Number: US-MERCK-1407USA003407

PATIENT
  Sex: Female
  Weight: 90.4 kg

DRUGS (1)
  1. ZOLINZA [Suspect]
     Active Substance: VORINOSTAT
     Indication: METASTATIC NEOPLASM
     Dosage: 400 MG,QD
     Route: 048
     Dates: start: 20140409

REACTIONS (2)
  - Malignant neoplasm progression [Fatal]
  - Neoplasm malignant [Fatal]

NARRATIVE: CASE EVENT DATE: 2014
